FAERS Safety Report 7985805-2 (Version None)
Quarter: 2011Q4

REPORT INFORMATION
  Report Type: 
  Country: None (occurrence: None)
  Receive Date: 20111214
  Receipt Date: 20111130
  Transmission Date: 20120403
  Serious: Yes (Hospitalization, Other)
  Sender: FDA-Public Use
  Company Number: 2011MA017048

PATIENT
  Sex: Female
  Weight: 92.9874 kg

DRUGS (15)
  1. LEVOTHYROXINE SODIUM [Concomitant]
  2. ARICEPT [Concomitant]
  3. ALLOPURINOL [Concomitant]
  4. TOPROL-XL [Concomitant]
  5. LASIX [Concomitant]
  6. COUMADIN [Concomitant]
  7. DEMEROL [Concomitant]
  8. PHENERGAN [Concomitant]
  9. DIAZEPAM [Concomitant]
  10. POTASSIUM CHLORIDE [Concomitant]
  11. DIGOXIN [Suspect]
     Indication: ATRIAL FIBRILLATION
     Dosage: .25 MG;QD;PO
     Route: 048
     Dates: start: 20060401, end: 20090518
  12. HYDROCODONE [Concomitant]
  13. APAP TAB [Concomitant]
  14. LEXAPRO [Concomitant]
  15. DILTIAZEM HCL [Concomitant]

REACTIONS (32)
  - ANXIETY [None]
  - DECREASED ACTIVITY [None]
  - INTRAOCULAR LENS IMPLANT [None]
  - BRADYARRHYTHMIA [None]
  - MENTAL DISORDER [None]
  - FLANK PAIN [None]
  - HYSTERECTOMY [None]
  - CAROTID ARTERY STENOSIS [None]
  - CYSTOPEXY [None]
  - RECTOCELE REPAIR [None]
  - BICUSPID AORTIC VALVE [None]
  - SICK SINUS SYNDROME [None]
  - NAUSEA [None]
  - VOMITING [None]
  - HYPERTENSION [None]
  - BRADYCARDIA [None]
  - AORTIC VALVE DISEASE [None]
  - MULTIPLE INJURIES [None]
  - UNEVALUABLE EVENT [None]
  - HYPOPNOEA [None]
  - EMOTIONAL DISORDER [None]
  - MEMORY IMPAIRMENT [None]
  - CHEST PAIN [None]
  - ATRIAL FIBRILLATION [None]
  - GOUT [None]
  - ECONOMIC PROBLEM [None]
  - HEART RATE INCREASED [None]
  - DEMENTIA [None]
  - PAIN [None]
  - HYPERTHYROIDISM [None]
  - SYNCOPE [None]
  - NEPHROLITHIASIS [None]
